FAERS Safety Report 20987981 (Version 2)
Quarter: 2022Q3

REPORT INFORMATION
  Report Type: Spontaneous
  Country: US (occurrence: US)
  Receive Date: 20220621
  Receipt Date: 20220810
  Transmission Date: 20221027
  Serious: No
  Sender: FDA-Public Use
  Company Number: US-PFIZER INC-202200851407

PATIENT
  Age: 77 Year
  Sex: Male
  Weight: 92.971 kg

DRUGS (2)
  1. PAXLOVID [Suspect]
     Active Substance: NIRMATRELVIR\RITONAVIR
     Indication: COVID-19 treatment
     Dosage: 3 DF, 2X/DAY,  (300 MG NIRMATRELVIR 100 MG RITONAVIR BOTH 2X A DAY FOR 5 DAYS)
     Route: 048
     Dates: start: 20220616, end: 20220620
  2. TYLENOL [Concomitant]
     Active Substance: ACETAMINOPHEN
     Indication: Pyrexia
     Dosage: UNK, AS NEEDED
     Dates: start: 20220616, end: 2022

REACTIONS (1)
  - Dysgeusia [Recovered/Resolved]

NARRATIVE: CASE EVENT DATE: 20220616
